FAERS Safety Report 23049480 (Version 1)
Quarter: 2023Q4

REPORT INFORMATION
  Report Type: Spontaneous
  Country: CZ (occurrence: CZ)
  Receive Date: 20231010
  Receipt Date: 20231010
  Transmission Date: 20240110
  Serious: Yes (Hospitalization, Other)
  Sender: FDA-Public Use
  Company Number: CZ-BRISTOL-MYERS SQUIBB COMPANY-2023-142068

PATIENT
  Age: 62 Year
  Sex: Male

DRUGS (15)
  1. OPDIVO [Suspect]
     Active Substance: NIVOLUMAB
     Indication: Renal cell carcinoma
     Dosage: DOSE : C1 2L IMMUNOTHERAPY 240MG FROM C2 480MG;     FREQ : UNAVAILABLE
     Dates: start: 20220307
  2. OPDIVO [Suspect]
     Active Substance: NIVOLUMAB
     Dosage: DOSE : C1 240MG FROM C2 480MG;     FREQ : UNAVAILABLE
  3. SUNITINIB [Concomitant]
     Active Substance: SUNITINIB
     Indication: Renal cell carcinoma
     Dosage: 1L FROM C2 2:1
     Dates: start: 20191122
  4. SUNITINIB [Concomitant]
     Active Substance: SUNITINIB
     Dosage: 2:1
     Dates: start: 202007
  5. SUNITINIB [Concomitant]
     Active Substance: SUNITINIB
     Dosage: CONTINUES
     Dates: start: 20201228
  6. PAZOPANIB [Concomitant]
     Active Substance: PAZOPANIB
     Indication: Renal cell carcinoma
  7. CABOZANTINIB [Concomitant]
     Active Substance: CABOZANTINIB
     Indication: Renal cell carcinoma
  8. TIVOZANIB [Concomitant]
     Active Substance: TIVOZANIB
     Indication: Renal cell carcinoma
  9. LEVOTHYROXINE [Concomitant]
     Active Substance: LEVOTHYROXINE
     Indication: Product used for unknown indication
     Dates: start: 202002
  10. LEVOTHYROXINE [Concomitant]
     Active Substance: LEVOTHYROXINE
     Dates: start: 202111
  11. AMLODIPINE BESYLATE\PERINDOPRIL ARGININE [Concomitant]
     Active Substance: AMLODIPINE BESYLATE\PERINDOPRIL ARGININE
     Indication: Product used for unknown indication
     Dosage: 5/5 MG.
  12. NEBIVOLOL [Concomitant]
     Active Substance: NEBIVOLOL
     Indication: Product used for unknown indication
     Dosage: 5/5 MG.
  13. OMEPRAZOLE [Concomitant]
     Active Substance: OMEPRAZOLE
     Indication: Product used for unknown indication
     Dosage: 5/5 MG.
  14. AXITINIB [Concomitant]
     Active Substance: AXITINIB
     Indication: Renal cell carcinoma
  15. EVEROLIMUS [Concomitant]
     Active Substance: EVEROLIMUS
     Indication: Renal cell carcinoma

REACTIONS (4)
  - Infusion related reaction [Unknown]
  - Rash pruritic [Unknown]
  - Pneumonitis [Unknown]
  - Haematuria [Unknown]

NARRATIVE: CASE EVENT DATE: 20220101
